FAERS Safety Report 13333617 (Version 7)
Quarter: 2017Q4

REPORT INFORMATION
  Report Type: Spontaneous
  Country: US (occurrence: US)
  Receive Date: 20170314
  Receipt Date: 20171027
  Transmission Date: 20180320
  Serious: Yes (Other)
  Sender: FDA-Public Use
  Company Number: PHEH2017US007558

PATIENT
  Sex: Female
  Weight: 58.97 kg

DRUGS (3)
  1. ONDANSETRON. [Suspect]
     Active Substance: ONDANSETRON
     Indication: VOMITING IN PREGNANCY
     Dosage: 4 MG, UNK
     Route: 065
     Dates: start: 20120621, end: 201208
  2. ZOFRAN [Suspect]
     Active Substance: ONDANSETRON HYDROCHLORIDE
     Indication: PRODUCT USED FOR UNKNOWN INDICATION
     Route: 048
  3. ZOFRAN ODT [Suspect]
     Active Substance: ONDANSETRON HYDROCHLORIDE
     Indication: PRODUCT USED FOR UNKNOWN INDICATION
     Route: 048

REACTIONS (17)
  - Neck pain [Unknown]
  - Pre-eclampsia [Unknown]
  - Fatigue [Unknown]
  - Polyhydramnios [Unknown]
  - Plantar fascial fibromatosis [Unknown]
  - Diarrhoea [Unknown]
  - Gestational hypertension [Unknown]
  - Irritable bowel syndrome [Unknown]
  - Anxiety [Unknown]
  - Pain in extremity [Unknown]
  - Maternal exposure during pregnancy [Unknown]
  - Injury [Unknown]
  - Nasopharyngitis [Unknown]
  - Emotional distress [Unknown]
  - Cough [Unknown]
  - Product use issue [Unknown]
  - Arthralgia [Unknown]
